FAERS Safety Report 6590467-5 (Version None)
Quarter: 2010Q1

REPORT INFORMATION
  Report Type: 
  Country: None (occurrence: None)
  Receive Date: 20100219
  Receipt Date: 20100211
  Transmission Date: 20100710
  Serious: Yes (Other)
  Sender: FDA-Public Use
  Company Number: AU-ROCHE-684968

PATIENT
  Age: 16 Year
  Sex: Female

DRUGS (4)
  1. TRETINOIN [Suspect]
     Route: 065
  2. MERCAPTOPURINE [Suspect]
     Route: 065
  3. IDARUBICIN HCL [Suspect]
     Route: 065
  4. METHOTREXATE [Suspect]
     Route: 065

REACTIONS (1)
  - CYTOGENETIC ABNORMALITY [None]
